FAERS Safety Report 16103185 (Version 1)
Quarter: 2019Q1

REPORT INFORMATION
  Report Type: Spontaneous
  Country: GB (occurrence: US)
  Receive Date: 20190322
  Receipt Date: 20190322
  Transmission Date: 20190418
  Serious: Yes (Death, Hospitalization, Congenital Anomaly, Other)
  Sender: FDA-Public Use
  Company Number: UK-ACCORD-001872

PATIENT
  Sex: Female

DRUGS (4)
  1. PREDNISONE. [Suspect]
     Active Substance: PREDNISONE
     Indication: IMMUNOSUPPRESSANT DRUG THERAPY
     Route: 064
  2. ACICLOVIR [Suspect]
     Active Substance: ACYCLOVIR
     Indication: HERPES ZOSTER
     Route: 064
  3. MYCOPHENOLIC ACID. [Suspect]
     Active Substance: MYCOPHENOLIC ACID
     Indication: IMMUNOSUPPRESSANT DRUG THERAPY
     Route: 064
  4. TACROLIMUS. [Suspect]
     Active Substance: TACROLIMUS
     Indication: IMMUNOSUPPRESSANT DRUG THERAPY
     Dosage: 3MG IN THE MORNING AND 2MG AT NIGHT
     Route: 064

REACTIONS (16)
  - Dysmorphism [Fatal]
  - Congenital nail disorder [Fatal]
  - Abdominal hernia [Unknown]
  - Tracheo-oesophageal fistula [Fatal]
  - Congenital anomaly [Unknown]
  - Cyanosis [Unknown]
  - Congenital diaphragmatic hernia [Fatal]
  - Foetal exposure timing unspecified [Unknown]
  - Cleft palate [Fatal]
  - Heart disease congenital [Fatal]
  - Pterygium colli [Unknown]
  - Microtia [Fatal]
  - Oesophageal atresia [Fatal]
  - Craniofacial deformity [Fatal]
  - Pulmonary hypertension [Unknown]
  - Atrial septal defect [Fatal]
